FAERS Safety Report 7265098-4 (Version None)
Quarter: 2011Q1

REPORT INFORMATION
  Report Type: 
  Country: None (occurrence: None)
  Receive Date: 20110131
  Receipt Date: 20110120
  Transmission Date: 20110831
  Serious: No
  Sender: FDA-Public Use
  Company Number: IE-PFIZER INC-2010150593

PATIENT
  Age: 65 Year
  Sex: Female

DRUGS (1)
  1. DETRUSITOL [Suspect]
     Dosage: 20 MG, UNK

REACTIONS (1)
  - NO ADVERSE EVENT [None]
